FAERS Safety Report 8321220 (Version 13)
Quarter: 2013Q1

REPORT INFORMATION
  Report Type: Spontaneous
  Country: US (occurrence: US)
  Receive Date: 20120104
  Receipt Date: 20130226
  Transmission Date: 20140127
  Serious: Yes (Death, Hospitalization, Other)
  Sender: FDA-Public Use
  Company Number: PHEH2012US000508

PATIENT
  Sex: Female

DRUGS (7)
  1. ZOMETA [Suspect]
     Dosage: 4 MG,
     Route: 042
  2. TAXOTERE [Concomitant]
  3. HERCEPTIN [Concomitant]
  4. AVASTIN [Concomitant]
  5. OXYCONTIN [Concomitant]
  6. LORTAB [Concomitant]
  7. MOTRIN [Concomitant]

REACTIONS (78)
  - Neoplasm malignant [Fatal]
  - Nausea [Recovering/Resolving]
  - Headache [Recovering/Resolving]
  - Vomiting [Recovering/Resolving]
  - Small intestinal obstruction [Unknown]
  - Osteonecrosis of jaw [Unknown]
  - Osteoradionecrosis [Unknown]
  - Breast mass [Unknown]
  - Swelling face [Recovering/Resolving]
  - Breast cancer [Unknown]
  - Metastases to central nervous system [Unknown]
  - Metastases to bone [Unknown]
  - Metastases to spine [Unknown]
  - Scoliosis [Unknown]
  - Hypertension [Unknown]
  - Pleural effusion [Unknown]
  - Intestinal obstruction [Unknown]
  - Metastases to liver [Unknown]
  - Metastases to abdominal cavity [Unknown]
  - Oedema [Unknown]
  - Atelectasis [Unknown]
  - Lymphadenopathy [Unknown]
  - Hepatic cyst [Unknown]
  - Perirectal abscess [Unknown]
  - Neuropathy peripheral [Unknown]
  - Haematoma [Unknown]
  - Necrosis [Unknown]
  - Intervertebral disc degeneration [Unknown]
  - Uterine leiomyoma [Unknown]
  - Osteosclerosis [Unknown]
  - Mitral valve incompetence [Unknown]
  - Aortic valve incompetence [Unknown]
  - Hydrocephalus [Unknown]
  - Hyperlipidaemia [Unknown]
  - Compression fracture [Unknown]
  - Pneumocephalus [Recovering/Resolving]
  - Emphysema [Unknown]
  - Atrophy [Unknown]
  - Ataxia [Recovering/Resolving]
  - Seroma [Unknown]
  - Cushingoid [Unknown]
  - Muscle strain [Unknown]
  - Dizziness [Unknown]
  - Aphasia [Unknown]
  - Brain neoplasm [Unknown]
  - Brain mass [Unknown]
  - Bone cancer [Unknown]
  - Tricuspid valve incompetence [Unknown]
  - Osteolysis [Unknown]
  - Pleural fibrosis [Unknown]
  - Adenocarcinoma [Unknown]
  - Arthritis [Unknown]
  - Intervertebral disc space narrowing [Unknown]
  - Colon cancer [Unknown]
  - Gastrooesophageal reflux disease [Unknown]
  - Metastases to lymph nodes [Unknown]
  - Uterine malposition [Unknown]
  - Uterine enlargement [Unknown]
  - Arteriosclerosis [Unknown]
  - Wound [Unknown]
  - Exposed bone in jaw [Unknown]
  - Inflammation [Unknown]
  - Gingival bleeding [Unknown]
  - Tooth loss [Unknown]
  - Urinary tract infection [Unknown]
  - Dyspnoea [Unknown]
  - Back pain [Unknown]
  - Hot flush [Unknown]
  - Constipation [Unknown]
  - Dry eye [Unknown]
  - Thrombocytopenia [Unknown]
  - Neck pain [Unknown]
  - Abdominal pain [Unknown]
  - Musculoskeletal pain [Unknown]
  - Fatigue [Unknown]
  - Alopecia [Unknown]
  - Aortic valve calcification [Unknown]
  - Mitral valve calcification [Unknown]
